FAERS Safety Report 10973429 (Version 1)
Quarter: 2015Q2

REPORT INFORMATION
  Report Type: Spontaneous
  Country: GB (occurrence: GB)
  Receive Date: 20150401
  Receipt Date: 20150401
  Transmission Date: 20150821
  Serious: Yes (Other)
  Sender: FDA-Public Use
  Company Number: GB-CIPLA LTD.-2015GB02552

PATIENT

DRUGS (3)
  1. CLOPIDOGREL BISULPHATE [Suspect]
     Active Substance: CLOPIDOGREL BISULFATE
     Indication: HYPERTENSION
  2. LOSARTAN [Concomitant]
     Active Substance: LOSARTAN
  3. RAMIPRIL. [Suspect]
     Active Substance: RAMIPRIL
     Indication: HYPERTENSION

REACTIONS (3)
  - Transient ischaemic attack [Recovered/Resolved]
  - Feeding disorder [Recovered/Resolved]
  - Cough [Recovered/Resolved]
